FAERS Safety Report 8430311-4 (Version None)
Quarter: 2012Q2

REPORT INFORMATION
  Report Type: 
  Country: None (occurrence: None)
  Receive Date: 20120323
  Receipt Date: 20111220
  Transmission Date: 20120825
  Serious: Yes (Other)
  Sender: FDA-Public Use
  Company Number: 163-21880-11083033

PATIENT
  Age: 59 Year
  Sex: Male

DRUGS (15)
  1. ZOLPIDEM [Concomitant]
  2. ACETAMINOPHEN [Concomitant]
  3. ASPIRIN [Concomitant]
  4. RESTORIL [Concomitant]
  5. VALACYCLOVIR HYDROCHLORIDE [Concomitant]
  6. CRESTOR [Concomitant]
  7. LOVAZA [Concomitant]
  8. LEVAQUIN [Concomitant]
  9. REVLIMID [Suspect]
     Indication: MULTIPLE MYELOMA
     Dosage: 25 MG, DAILY X 21 DAYS OF 28 DAY CYCLE, PO
     Route: 048
     Dates: start: 20110613
  10. DEXAMETHASONE [Concomitant]
  11. LIDODERM [Concomitant]
  12. OMEPRAZOLE [Concomitant]
  13. VELCADE [Suspect]
     Indication: PRODUCT USED FOR UNKNOWN INDICATION
  14. MULTI-VITAMINS [Concomitant]
  15. SLOW-MAG (MAGNESIUM CHLORIDE ANNHYDROUS) [Concomitant]

REACTIONS (5)
  - DECREASED APPETITE [None]
  - DEHYDRATION [None]
  - DIZZINESS [None]
  - HYPOVOLAEMIA [None]
  - DIARRHOEA [None]
